FAERS Safety Report 17213342 (Version 1)
Quarter: 2019Q4

REPORT INFORMATION
  Report Type: Spontaneous
  Country: US (occurrence: US)
  Receive Date: 20191230
  Receipt Date: 20191230
  Transmission Date: 20200122
  Serious: No
  Sender: FDA-Public Use
  Company Number: US-SHIRE-US201944887

PATIENT
  Age: 65 Year
  Sex: Female

DRUGS (1)
  1. VYVANSE [Suspect]
     Active Substance: LISDEXAMFETAMINE DIMESYLATE
     Indication: ATTENTION DEFICIT/HYPERACTIVITY DISORDER
     Dosage: 60 MILLIGRAM, 1X/DAY:QD
     Route: 065

REACTIONS (4)
  - Nasopharyngitis [Unknown]
  - Somnolence [Unknown]
  - Depression [Unknown]
  - Product physical issue [Unknown]
